FAERS Safety Report 24652830 (Version 1)
Quarter: 2024Q4

REPORT INFORMATION
  Report Type: Spontaneous
  Country: CN (occurrence: CN)
  Receive Date: 20241122
  Receipt Date: 20241122
  Transmission Date: 20250114
  Serious: Yes (Other)
  Sender: PFIZER
  Company Number: CN-PFIZER INC-PV202400150049

PATIENT
  Age: 80 Year
  Sex: Male

DRUGS (2)
  1. METHOTREXATE SODIUM [Suspect]
     Active Substance: METHOTREXATE SODIUM
     Indication: Therapeutic procedure
     Dosage: 20.00000 MG, 1X/DAY
     Route: 042
     Dates: start: 20241115, end: 20241115
  2. BLEOMYCIN HYDROCHLORIDE [Suspect]
     Active Substance: BLEOMYCIN HYDROCHLORIDE
     Indication: Therapeutic procedure
     Dosage: 8.000 MG, 1X/DAY
     Route: 042
     Dates: start: 20241115, end: 20241115

REACTIONS (5)
  - Chills [Recovering/Resolving]
  - Blood pressure increased [Recovering/Resolving]
  - Palpitations [Recovering/Resolving]
  - Hyperhidrosis [Recovering/Resolving]
  - Tremor [Recovering/Resolving]

NARRATIVE: CASE EVENT DATE: 20241115
